FAERS Safety Report 25072378 (Version 2)
Quarter: 2025Q2

REPORT INFORMATION
  Report Type: Spontaneous
  Country: CA (occurrence: CA)
  Receive Date: 20250313
  Receipt Date: 20250404
  Transmission Date: 20250717
  Serious: Yes (Death, Life-Threatening, Hospitalization, Disabling, Congenital Anomaly, Other)
  Sender: SANOFI AVENTIS
  Company Number: CA-SA-2025SA046350

PATIENT
  Age: 43 Year
  Sex: Female
  Weight: 96 kg

DRUGS (26)
  1. ARAVA [Suspect]
     Active Substance: LEFLUNOMIDE
     Indication: Rheumatoid arthritis
     Route: 065
  2. METFORMIN HYDROCHLORIDE [Suspect]
     Active Substance: METFORMIN HYDROCHLORIDE
     Indication: Migraine
     Route: 065
  3. HYDROXYCHLOROQUINE SULFATE [Suspect]
     Active Substance: HYDROXYCHLOROQUINE SULFATE
     Indication: Rheumatoid arthritis
     Dosage: 40 MG, QD
     Route: 065
  4. FOLIC ACID [Suspect]
     Active Substance: FOLIC ACID
     Indication: Rheumatoid arthritis
  5. METHOTREXATE [Suspect]
     Active Substance: METHOTREXATE
     Indication: Rheumatoid arthritis
     Dosage: 20 MG, QD
     Route: 048
  6. ATIVAN [Concomitant]
     Active Substance: LORAZEPAM
  7. METHYLPREDNISOLONE SODIUM SUCCINATE [Suspect]
     Active Substance: METHYLPREDNISOLONE SODIUM SUCCINATE
  8. PSEUDOEPHEDRINE HYDROCHLORIDE [Suspect]
     Active Substance: PSEUDOEPHEDRINE HYDROCHLORIDE
  9. PREDNISONE [Suspect]
     Active Substance: PREDNISONE
     Indication: Rheumatoid arthritis
     Route: 048
  10. RAMIPRIL [Suspect]
     Active Substance: RAMIPRIL
     Indication: Rheumatoid arthritis
     Route: 016
  11. RANITIDINE [Suspect]
     Active Substance: RANITIDINE
     Indication: Rheumatoid arthritis
  12. PANADOL [Suspect]
     Active Substance: ACETAMINOPHEN
  13. TRIAMCINOLONE ACETONIDE [Suspect]
     Active Substance: TRIAMCINOLONE ACETONIDE
     Indication: Rheumatoid arthritis
  14. TRAMADOL HYDROCHLORIDE [Suspect]
     Active Substance: TRAMADOL HYDROCHLORIDE
  15. CALCIUM GLUBIONATE [Concomitant]
     Active Substance: CALCIUM GLUBIONATE
  16. CALCIUM GLUCONATE [Concomitant]
     Active Substance: CALCIUM GLUCONATE
  17. CYANOCOBALAMIN [Concomitant]
     Active Substance: CYANOCOBALAMIN
  18. GLUCOSAMINE [Concomitant]
     Active Substance: GLUCOSAMINE
  19. IBUPROFEN [Concomitant]
     Active Substance: IBUPROFEN
  20. LANSOPRAZOLE [Concomitant]
     Active Substance: LANSOPRAZOLE
  21. FISH OIL [Concomitant]
     Active Substance: FISH OIL
  22. LISINOPRIL [Concomitant]
     Active Substance: LISINOPRIL
  23. PREDNISOLONE [Concomitant]
     Active Substance: PREDNISOLONE
  24. QUETIAPINE FUMARATE [Concomitant]
     Active Substance: QUETIAPINE FUMARATE
  25. RISEDRONATE SODIUM [Concomitant]
     Active Substance: RISEDRONATE SODIUM
  26. SULFASALAZINE [Concomitant]
     Active Substance: SULFASALAZINE

REACTIONS (16)
  - Breast cancer stage III [Fatal]
  - Epilepsy [Fatal]
  - Systemic lupus erythematosus [Fatal]
  - Psoriatic arthropathy [Fatal]
  - Duodenal ulcer perforation [Fatal]
  - Type 2 diabetes mellitus [Fatal]
  - Rheumatoid arthritis [Fatal]
  - Liver injury [Fatal]
  - Pemphigus [Fatal]
  - Pericarditis [Fatal]
  - Maternal exposure during pregnancy [Fatal]
  - Drug ineffective [Fatal]
  - Intentional product use issue [Fatal]
  - Product quality issue [Fatal]
  - Product use in unapproved indication [Fatal]
  - Off label use [Fatal]
